FAERS Safety Report 10748415 (Version 1)
Quarter: 2015Q1

REPORT INFORMATION
  Report Type: Spontaneous
  Country: US (occurrence: None)
  Receive Date: 20150128
  Receipt Date: 20150128
  Transmission Date: 20150721
  Serious: No
  Sender: FDA-Public Use
  Company Number: None

PATIENT
  Age: 52 Year
  Sex: Male
  Weight: 63.5 kg

DRUGS (1)
  1. CERDELGA [Suspect]
     Active Substance: ELIGLUSTAT
     Indication: GAUCHER^S DISEASE
     Dosage: 1 CAPSULE
     Route: 048
     Dates: start: 20141223

REACTIONS (7)
  - Dyskinesia [None]
  - Loss of consciousness [None]
  - Dysarthria [None]
  - Tremor [None]
  - Seizure [None]
  - Somnolence [None]
  - Abasia [None]

NARRATIVE: CASE EVENT DATE: 20150115
